FAERS Safety Report 7987392-1 (Version None)
Quarter: 2011Q4

REPORT INFORMATION
  Report Type: 
  Country: None (occurrence: None)
  Receive Date: 20111216
  Receipt Date: 20110401
  Transmission Date: 20120403
  Serious: No
  Sender: FDA-Public Use
  Company Number: US-BRISTOL-MYERS SQUIBB COMPANY-15653652

PATIENT
  Age: 10 Year
  Sex: Male

DRUGS (4)
  1. DEPAKOTE [Concomitant]
  2. ABILIFY [Suspect]
     Indication: BIPOLAR DISORDER
     Dosage: DECREASED TO 5 MG
     Route: 048
  3. ABILIFY [Suspect]
     Indication: AFFECTIVE DISORDER
     Dosage: DECREASED TO 5 MG
     Route: 048
  4. LITHIUM CARBONATE [Concomitant]

REACTIONS (2)
  - SPEECH DISORDER [None]
  - DYSTONIA [None]
